FAERS Safety Report 18321635 (Version 1)
Quarter: 2020Q3

REPORT INFORMATION
  Report Type: Spontaneous
  Country: US (occurrence: US)
  Receive Date: 20200928
  Receipt Date: 20200928
  Transmission Date: 20201103
  Serious: No
  Sender: FDA-Public Use
  Company Number: US-PFIZER INC-2020289754

PATIENT
  Age: 64 Year
  Sex: Female

DRUGS (1)
  1. SOMAVERT [Suspect]
     Active Substance: PEGVISOMANT
     Indication: ACROMEGALY
     Dosage: 10 MG (10MG ONCE A DAY THREE TIMES A WEEKS ON MONDAY, WEDNESDAY, FRIDAY EACH WEEK)
     Route: 058
     Dates: start: 20200807

REACTIONS (3)
  - Diarrhoea [Unknown]
  - Off label use [Unknown]
  - Dyspepsia [Unknown]

NARRATIVE: CASE EVENT DATE: 20200807
